FAERS Safety Report 19087170 (Version 1)
Quarter: 2021Q2

REPORT INFORMATION
  Report Type: Spontaneous
  Country: US (occurrence: US)
  Receive Date: 20210402
  Receipt Date: 20210402
  Transmission Date: 20210717
  Serious: Yes (Other)
  Sender: FDA-Public Use
  Company Number: None

PATIENT
  Age: 9 Year
  Sex: Female

DRUGS (2)
  1. GUANFACINE 1MG [Suspect]
     Active Substance: GUANFACINE
     Indication: ANXIETY
     Dosage: ?          OTHER FREQUENCY:1/2 TABLET BID;?
     Route: 048
     Dates: start: 20210310, end: 20210320
  2. GUANFACINE 1MG [Suspect]
     Active Substance: GUANFACINE
     Indication: ATTENTION DEFICIT HYPERACTIVITY DISORDER
     Dosage: ?          OTHER FREQUENCY:1/2 TABLET BID;?
     Route: 048
     Dates: start: 20210310, end: 20210320

REACTIONS (1)
  - Angioedema [None]

NARRATIVE: CASE EVENT DATE: 20210320
